FAERS Safety Report 8439546-8 (Version None)
Quarter: 2012Q2

REPORT INFORMATION
  Report Type: 
  Country: None (occurrence: None)
  Receive Date: 20120323
  Receipt Date: 20110527
  Transmission Date: 20120825
  Serious: Yes (Hospitalization)
  Sender: FDA-Public Use
  Company Number: 163-21880-11053542

PATIENT
  Age: 57 Year
  Sex: Female

DRUGS (1)
  1. REVLIMID [Suspect]
     Indication: NON-HODGKIN'S LYMPHOMA
     Dosage: 25 MG, DAILY X 21 DAYS, PO
     Route: 048
     Dates: start: 20101201

REACTIONS (2)
  - NON-HODGKIN'S LYMPHOMA [None]
  - DISEASE PROGRESSION [None]
